FAERS Safety Report 8445280-0 (Version None)
Quarter: 2012Q2

REPORT INFORMATION
  Report Type: 
  Country: None (occurrence: None)
  Receive Date: 20120605
  Receipt Date: 20120522
  Transmission Date: 20120825
  Serious: Yes (Death, Hospitalization)
  Sender: FDA-Public Use
  Company Number: 2012SP027436

PATIENT
  Age: 65 Year
  Sex: Male

DRUGS (4)
  1. REBETOL [Suspect]
     Indication: HEPATITIS C
     Dosage: 800 MG;QD;PO
     Route: 048
     Dates: start: 20010227, end: 20011004
  2. VIRAFERONPEG [Suspect]
     Indication: HEPATITIS C
     Dosage: 0.5 MCG/KG;QW;SC
     Route: 058
     Dates: start: 20010227, end: 20011004
  3. PEGASYS [Suspect]
     Indication: HEPATITIS C
     Dosage: SC, 180 MCG;QW
     Route: 058
     Dates: start: 20090817, end: 20100321
  4. PEGASYS [Suspect]
     Indication: HEPATITIS C
     Dosage: SC, 180 MCG;QW
     Route: 058
     Dates: start: 20010801

REACTIONS (2)
  - CARDIAC ARREST [None]
  - PULMONARY FIBROSIS [None]
